FAERS Safety Report 20337273 (Version 1)
Quarter: 2022Q1

REPORT INFORMATION
  Report Type: Spontaneous
  Country: US (occurrence: US)
  Receive Date: 20220114
  Receipt Date: 20220114
  Transmission Date: 20220423
  Serious: No
  Sender: FDA-Public Use
  Company Number: US-SA-SAC20220110000119

PATIENT
  Age: 83 Year
  Sex: Male

DRUGS (17)
  1. DUPIXENT [Suspect]
     Active Substance: DUPILUMAB
     Indication: Asthma
     Dosage: 300 MG, QOW
     Route: 058
     Dates: start: 20211006
  2. ALBUTEROL SULFATE [Concomitant]
     Active Substance: ALBUTEROL SULFATE
  3. AMLODIPINE [Concomitant]
     Active Substance: AMLODIPINE BESYLATE
     Dosage: UNK
  4. ASPIRIN [Concomitant]
     Active Substance: ASPIRIN
  5. ATROVENT HFA [Concomitant]
     Active Substance: IPRATROPIUM BROMIDE
  6. CLINDAMYCIN PHOSPHATE [Concomitant]
     Active Substance: CLINDAMYCIN PHOSPHATE
  7. EPIPEN [Concomitant]
     Active Substance: EPINEPHRINE
  8. FLUOCINONIDE [Concomitant]
     Active Substance: FLUOCINONIDE
  9. LATANOPROST [Concomitant]
     Active Substance: LATANOPROST
  10. LOSARTAN POTASSIUM [Concomitant]
     Active Substance: LOSARTAN POTASSIUM
  11. OFLOXACIN [Concomitant]
     Active Substance: OFLOXACIN
  12. RANEXA [RANOLAZINE] [Concomitant]
  13. REPATHA [Concomitant]
     Active Substance: EVOLOCUMAB
  14. SINGULAIR [Concomitant]
     Active Substance: MONTELUKAST SODIUM
  15. SPIRIVA [Concomitant]
     Active Substance: TIOTROPIUM BROMIDE MONOHYDRATE
  16. VYZULTA [Concomitant]
     Active Substance: LATANOPROSTENE BUNOD
  17. CILOSTAZOL [Concomitant]
     Active Substance: CILOSTAZOL

REACTIONS (2)
  - Back pain [Recovered/Resolved]
  - Product use issue [Unknown]

NARRATIVE: CASE EVENT DATE: 20210901
